FAERS Safety Report 10191149 (Version 1)
Quarter: 2014Q2

REPORT INFORMATION
  Report Type: Spontaneous
  Country: GB (occurrence: GB)
  Receive Date: 20140523
  Receipt Date: 20140523
  Transmission Date: 20141212
  Serious: Yes (Life-Threatening)
  Sender: FDA-Public Use
  Company Number: GB-MYLANLABS-2014S1011013

PATIENT
  Age: 70 Year
  Sex: Male
  Weight: 73 kg

DRUGS (5)
  1. OMEPRAZOLE [Suspect]
     Dates: start: 20140303, end: 20140331
  2. OMEPRAZOLE [Suspect]
     Dates: start: 20140106, end: 20140221
  3. OMEPRAZOLE [Suspect]
     Dates: start: 20140409
  4. BISACODYL [Concomitant]
     Dates: start: 20140424, end: 20140429
  5. DOMPERIDONE [Concomitant]
     Dates: start: 20140415

REACTIONS (2)
  - Tubulointerstitial nephritis [Recovering/Resolving]
  - Renal failure acute [Unknown]
